FAERS Safety Report 12178793 (Version 1)
Quarter: 2016Q1

REPORT INFORMATION
  Report Type: Spontaneous
  Country: US (occurrence: US)
  Receive Date: 20160314
  Receipt Date: 20160314
  Transmission Date: 20160526
  Serious: No
  Sender: FDA-Public Use
  Company Number: US-SA-2016SA007339

PATIENT
  Age: 57 Year
  Sex: Male

DRUGS (5)
  1. METFORMIN [Suspect]
     Active Substance: METFORMIN HYDROCHLORIDE
     Route: 065
  2. TRICOR [Concomitant]
     Active Substance: FENOFIBRATE
  3. TOUJEO [Suspect]
     Active Substance: INSULIN GLARGINE
     Indication: TYPE 2 DIABETES MELLITUS
     Dosage: DOSE:14 UNIT(S)
     Route: 065
     Dates: start: 201512
  4. LOSARTAN. [Concomitant]
     Active Substance: LOSARTAN
  5. BABY ASPIRIN [Concomitant]
     Active Substance: ASPIRIN

REACTIONS (4)
  - Drug administration error [Unknown]
  - Feeling abnormal [Unknown]
  - Blood glucose increased [Unknown]
  - Incorrect product storage [Unknown]
